FAERS Safety Report 21745274 (Version 1)
Quarter: 2022Q4

REPORT INFORMATION
  Report Type: Spontaneous
  Country: FR (occurrence: FR)
  Receive Date: 20221219
  Receipt Date: 20221219
  Transmission Date: 20230112
  Serious: Yes (Other)
  Sender: FDA-Public Use
  Company Number: FR-BAXTER-2022BAX026297

PATIENT
  Age: 67 Year
  Sex: Female

DRUGS (3)
  1. CYCLOPHOSPHAMIDE [Suspect]
     Active Substance: CYCLOPHOSPHAMIDE
     Indication: Product used for unknown indication
     Dosage: UNK, 500 MG/DOSE 1 DOSE(S) /WEEK 3 WEEK(S)/CYCLE, TREATMENT LINE NUMBER 1, TREATMENT DURATION: 9.7 M
     Route: 065
     Dates: end: 20200901
  2. DEXAMETHASONE [Suspect]
     Active Substance: DEXAMETHASONE
     Indication: Product used for unknown indication
     Dosage: UNK, (CORTICOSTEROIDS) 40 MG/DOSE 4 DOSE(S)/WEEK 2 WEEK(S)/CYCLE, TREATMENT LINE NUMBER 1, TREATMENT
     Route: 065
     Dates: end: 20200901
  3. BORTEZOMIB [Suspect]
     Active Substance: BORTEZOMIB
     Indication: Product used for unknown indication
     Dosage: UNK, 1.3 MG/KG/DOSE 2 DOSE(S)/WEEK 2 WEEK(S)/CYCLE, TREATMENT LINE NUMBER 1, TREATMENT DURATION: 9.7
     Route: 065
     Dates: end: 20200901

REACTIONS (1)
  - Fanconi syndrome [Unknown]

NARRATIVE: CASE EVENT DATE: 20200901
